FAERS Safety Report 17458249 (Version 2)
Quarter: 2020Q1

REPORT INFORMATION
  Report Type: Spontaneous
  Country: US (occurrence: US)
  Receive Date: 20200225
  Receipt Date: 20200302
  Transmission Date: 20200409
  Serious: No
  Sender: FDA-Public Use
  Company Number: US-NEPHRON STERILE COMPOUNDING CENTER-2080890

PATIENT
  Age: 25 Year
  Sex: Female
  Weight: 104 kg

DRUGS (9)
  1. ANCEF [Concomitant]
     Active Substance: CEFAZOLIN SODIUM
     Route: 040
  2. DEXAMETHASONE. [Concomitant]
     Active Substance: DEXAMETHASONE
     Route: 040
  3. LIDOCAINE HYDROCHLORIDE. [Concomitant]
     Active Substance: LIDOCAINE HYDROCHLORIDE
     Route: 042
  4. PROPOFOL. [Concomitant]
     Active Substance: PROPOFOL
     Route: 040
  5. ROBINUL [Concomitant]
     Active Substance: GLYCOPYRROLATE
     Route: 042
  6. ZOFRAN [Concomitant]
     Active Substance: ONDANSETRON HYDROCHLORIDE
     Route: 040
  7. FENTANYL. [Concomitant]
     Active Substance: FENTANYL
     Route: 040
  8. MIDAZOLAM HYDROCHLORIDE. [Concomitant]
     Active Substance: MIDAZOLAM HYDROCHLORIDE
     Route: 040
  9. PHENYLEPHRINE HCL [Suspect]
     Active Substance: PHENYLEPHRINE HYDROCHLORIDE
     Indication: PROCEDURAL HYPOTENSION
     Route: 040

REACTIONS (1)
  - Drug ineffective [Recovered/Resolved]
